FAERS Safety Report 15689276 (Version 2)
Quarter: 2019Q1

REPORT INFORMATION
  Report Type: Report from Study
  Country: ES (occurrence: ES)
  Receive Date: 20181205
  Receipt Date: 20190213
  Transmission Date: 20190417
  Serious: Yes (Hospitalization)
  Sender: FDA-Public Use
  Company Number: ES-SAKK-2018SA324249AA

PATIENT
  Sex: Female
  Weight: 102 kg

DRUGS (2)
  1. PRANDIN [REPAGLINIDE] [Concomitant]
     Indication: TYPE 2 DIABETES MELLITUS
     Dosage: 1 DF, TID (1-1-1)
     Route: 048
  2. INSULIN GLARGINE [Suspect]
     Active Substance: INSULIN GLARGINE
     Indication: TYPE 2 DIABETES MELLITUS
     Dosage: 80 IU, QD (EVERY 24 H)
     Route: 058

REACTIONS (1)
  - Hepatic mass [Not Recovered/Not Resolved]
